FAERS Safety Report 7080020-1 (Version None)
Quarter: 2010Q4

REPORT INFORMATION
  Report Type: 
  Country: None (occurrence: None)
  Receive Date: 20101102
  Receipt Date: 20100325
  Transmission Date: 20110411
  Serious: No
  Sender: FDA-Public Use
  Company Number: US-ABBOTT-10P-163-0635638-00

PATIENT
  Sex: Female
  Weight: 70.37 kg

DRUGS (2)
  1. BIAXIN [Suspect]
     Indication: EAR INFECTION
     Dates: start: 20100323
  2. PRENATAL VITAMINS [Concomitant]
     Indication: VITAMIN SUPPLEMENTATION

REACTIONS (1)
  - URTICARIA [None]
